FAERS Safety Report 9656187 (Version 3)
Quarter: 2013Q4

REPORT INFORMATION
  Report Type: Spontaneous
  Country: US (occurrence: US)
  Receive Date: 20131030
  Receipt Date: 20131126
  Transmission Date: 20140711
  Serious: No
  Sender: FDA-Public Use
  Company Number: US-PFIZER INC-2013304355

PATIENT
  Age: 67 Year
  Sex: Female
  Weight: 62.13 kg

DRUGS (4)
  1. ELELYSO [Suspect]
     Indication: GAUCHER^S DISEASE
     Dosage: 3600 UNITS EVERY 2 WEEKS
     Route: 042
     Dates: start: 20120621
  2. ELELYSO [Suspect]
     Dosage: UNK
  3. ELELYSO [Suspect]
     Dosage: UNK
  4. ELELYSO [Suspect]
     Dosage: UNK

REACTIONS (1)
  - No adverse event [Unknown]
